FAERS Safety Report 18946717 (Version 4)
Quarter: 2021Q2

REPORT INFORMATION
  Report Type: Report from Study
  Country: US (occurrence: US)
  Receive Date: 20210226
  Receipt Date: 20210416
  Transmission Date: 20210717
  Serious: Yes (Hospitalization)
  Sender: FDA-Public Use
  Company Number: NVSC2021US041457

PATIENT
  Age: 49 Year
  Sex: Female
  Weight: 38.1 kg

DRUGS (1)
  1. TREPROSTINIL. [Suspect]
     Active Substance: TREPROSTINIL
     Indication: PULMONARY ARTERIAL HYPERTENSION
     Dosage: (19 NG/KG/MIN)
     Route: 042
     Dates: start: 20210210

REACTIONS (9)
  - Hypoaesthesia [Unknown]
  - Asthenia [Unknown]
  - Pain in extremity [Unknown]
  - Nausea [Unknown]
  - Pain in jaw [Unknown]
  - Fatigue [Unknown]
  - Decreased appetite [Unknown]
  - Paraesthesia [Unknown]
  - Musculoskeletal discomfort [Unknown]

NARRATIVE: CASE EVENT DATE: 20210404
